FAERS Safety Report 22326206 (Version 1)
Quarter: 2023Q2

REPORT INFORMATION
  Report Type: Other
  Country: None (occurrence: CN)
  Receive Date: 20230516
  Receipt Date: 20230516
  Transmission Date: 20230722
  Serious: Yes (Life-Threatening)
  Sender: FDA-Public Use
  Company Number: CN-B.Braun Medical Inc.-2141541

PATIENT
  Age: 67 Year
  Sex: Female

DRUGS (8)
  1. MANNITOL [Suspect]
     Active Substance: MANNITOL
     Indication: Intracranial pressure increased
  2. METHYLPREDNISOLONE [Concomitant]
     Active Substance: METHYLPREDNISOLONE
  3. TACROLIMUS [Concomitant]
     Active Substance: TACROLIMUS
  4. Cefoperazone/ sulbactam [Concomitant]
  5. VORICONAZOLE [Concomitant]
     Active Substance: VORICONAZOLE
  6. MIDAZOLAM [Concomitant]
     Active Substance: MIDAZOLAM
  7. PROPOFOL [Concomitant]
     Active Substance: PROPOFOL
  8. REMIFENTANIL [Concomitant]
     Active Substance: REMIFENTANIL

REACTIONS (1)
  - Drug ineffective [Unknown]
